FAERS Safety Report 5228718-1 (Version None)
Quarter: 2007Q1

REPORT INFORMATION
  Report Type: 
  Country: None (occurrence: None)
  Receive Date: 20070205
  Receipt Date: 20070124
  Transmission Date: 20070707
  Serious: Yes (Hospitalization, Other)
  Sender: FDA-Public Use
  Company Number: PHBS2007TR00657

PATIENT
  Age: 78 Year
  Sex: Female
  Weight: 76 kg

DRUGS (3)
  1. ZOMETA [Suspect]
     Indication: OSTEOPOROSIS
     Dosage: UNK, UNK
     Route: 042
     Dates: start: 20050601, end: 20061101
  2. ANASTROZOLE [Suspect]
     Dosage: 1 DF, QD
     Route: 048
     Dates: start: 20010401
  3. TAMOXIFEN CITRATE [Concomitant]
     Dates: start: 19960101

REACTIONS (6)
  - DENTAL DISCOMFORT [None]
  - IMPAIRED HEALING [None]
  - MOUTH ULCERATION [None]
  - OSTEONECROSIS [None]
  - TOOTH EXTRACTION [None]
  - WOUND DEBRIDEMENT [None]
